FAERS Safety Report 10808180 (Version 1)
Quarter: 2015Q1

REPORT INFORMATION
  Report Type: Report from Study
  Country: US (occurrence: US)
  Receive Date: 20150217
  Receipt Date: 20150217
  Transmission Date: 20150721
  Serious: No
  Sender: FDA-Public Use
  Company Number: US-ABBVIE-11P-163-0856141-00

PATIENT
  Sex: Female
  Weight: 72.64 kg

DRUGS (3)
  1. HUMIRA [Suspect]
     Active Substance: ADALIMUMAB
     Indication: RHEUMATOID ARTHRITIS
     Dosage: ALTERNATES WITH PENS
     Route: 058
     Dates: start: 2002
  2. SPIRONOLACTONE/HCTZ [Concomitant]
     Indication: HYPERTENSION
     Dosage: 25/25MG: 1 IN 1 DAYS
  3. HUMIRA [Suspect]
     Active Substance: ADALIMUMAB
     Indication: PRODUCT USED FOR UNKNOWN INDICATION
     Dates: end: 201401

REACTIONS (1)
  - Oral herpes [Recovered/Resolved]
